FAERS Safety Report 12493747 (Version 3)
Quarter: 2016Q3

REPORT INFORMATION
  Report Type: Spontaneous
  Country: IT (occurrence: IT)
  Receive Date: 20160623
  Receipt Date: 20160706
  Transmission Date: 20161109
  Serious: Yes (Other)
  Sender: FDA-Public Use
  Company Number: IT-PFIZER INC-2016312390

PATIENT
  Sex: Female

DRUGS (10)
  1. PREDNISONE. [Suspect]
     Active Substance: PREDNISONE
     Dosage: 0.5 MG, DAILY
     Route: 064
  2. GM-CSF [Suspect]
     Active Substance: GRANULOCYTE-MACROPHAGE COLONY-STIMULATING FACTOR
     Dosage: UNK
     Route: 064
  3. RAMIPRIL. [Suspect]
     Active Substance: RAMIPRIL
     Dosage: UNK
     Route: 064
  4. PREDNISONE. [Suspect]
     Active Substance: PREDNISONE
     Dosage: 10 MG, DAILY
     Route: 064
  5. CYCLOPHOSPHAMIDE. [Suspect]
     Active Substance: CYCLOPHOSPHAMIDE
     Dosage: 3 MG/KG BODY WEIGHT/DAY FOR 6 MONTHS, DAILY
     Route: 064
  6. ERYTHROPOIETIN [Suspect]
     Active Substance: ERYTHROPOIETIN
     Dosage: UNK
     Route: 064
  7. EPO /00909301/ [Suspect]
     Active Substance: ERYTHROPOIETIN
     Route: 064
  8. LANSOPRAZOLE. [Suspect]
     Active Substance: LANSOPRAZOLE
     Dosage: UNK
     Route: 064
  9. METHYLPREDNISOLONE. [Suspect]
     Active Substance: METHYLPREDNISOLONE
     Dosage: 1 G, X 3 CONSECUTIVE DAYS
     Route: 064
  10. FUROSEMIDE. [Suspect]
     Active Substance: FUROSEMIDE
     Dosage: UNK
     Route: 064

REACTIONS (3)
  - Premature baby [Unknown]
  - Maternal exposure during pregnancy [Unknown]
  - Low birth weight baby [Unknown]
